FAERS Safety Report 5311229-2 (Version None)
Quarter: 2007Q2

REPORT INFORMATION
  Report Type: 
  Country: None (occurrence: None)
  Receive Date: 20070430
  Receipt Date: 20070407
  Transmission Date: 20071010
  Serious: Yes (Other)
  Sender: FDA-Public Use
  Company Number: PHHO2007DK06292

PATIENT
  Age: 58 Year
  Sex: Female
  Weight: 68 kg

DRUGS (1)
  1. VEA489 VS VAH631 VS VAA489 VS HCTZ/AMLOD [Suspect]
     Indication: HYPERTENSION
     Dosage: DOUBLE-BLIND
     Route: 048
     Dates: start: 20070312, end: 20070407

REACTIONS (3)
  - HYPERSENSITIVITY [None]
  - PERIORBITAL OEDEMA [None]
  - RASH [None]
